FAERS Safety Report 9686774 (Version 2)
Quarter: 2013Q4

REPORT INFORMATION
  Report Type: Spontaneous
  Country: FR (occurrence: FR)
  Receive Date: 20131113
  Receipt Date: 20131119
  Transmission Date: 20140711
  Serious: Yes (Life-Threatening, Hospitalization, Other)
  Sender: FDA-Public Use
  Company Number: FR-PFIZER INC-2013322161

PATIENT
  Age: 32 Year
  Sex: Male

DRUGS (7)
  1. EUPANTOL [Suspect]
     Dosage: 20 MG, DAILY
     Route: 048
     Dates: start: 20130812, end: 20130910
  2. CELLCEPT [Suspect]
     Dosage: 2000 MG, DAILY
     Route: 048
     Dates: start: 20130410
  3. KAYEXALATE [Concomitant]
     Dosage: UNK
  4. UVEDOSE [Concomitant]
     Dosage: 1 VIAL/MONTH
  5. AMLOR [Concomitant]
     Dosage: 5 MG, DAILY
  6. CARDENSIEL [Concomitant]
     Dosage: 2.5 MG, DAILY
     Dates: start: 20121126
  7. NEORAL [Concomitant]
     Dosage: 220 MG, DAILY

REACTIONS (4)
  - Lymphopenia [Recovered/Resolved]
  - Monocytosis [Recovered/Resolved]
  - Febrile neutropenia [Recovered/Resolved]
  - Agranulocytosis [Recovered/Resolved]
